FAERS Safety Report 4386451-2 (Version None)
Quarter: 2004Q2

REPORT INFORMATION
  Report Type: 
  Country: None (occurrence: None)
  Receive Date: 20040625
  Receipt Date: 20040625
  Transmission Date: 20050107
  Serious: Yes (Death, Hospitalization)
  Sender: FDA-Public Use
  Company Number: None

PATIENT
  Age: 79 Year
  Sex: Male

DRUGS (1)
  1. WARFARIN SODIUM [Suspect]
     Dates: end: 20040107

REACTIONS (11)
  - ASPIRATION [None]
  - CARDIAC FAILURE CONGESTIVE [None]
  - DIVERTICULUM [None]
  - FALL [None]
  - FOOT FRACTURE [None]
  - GASTROINTESTINAL HAEMORRHAGE [None]
  - HERPETIC STOMATITIS [None]
  - HYPOTENSION [None]
  - RESPIRATORY FAILURE [None]
  - STAPHYLOCOCCAL SEPSIS [None]
  - SYNCOPE [None]
